FAERS Safety Report 14984851 (Version 1)
Quarter: 2018Q2

REPORT INFORMATION
  Report Type: Spontaneous
  Country: US (occurrence: US)
  Receive Date: 20180607
  Receipt Date: 20180607
  Transmission Date: 20180711
  Serious: No
  Sender: FDA-Public Use
  Company Number: US-FOUNDATIONCONSUMERHC-2018-US-006093

PATIENT
  Age: 16 Year
  Sex: Female
  Weight: 62.14 kg

DRUGS (2)
  1. PLAN B ONE-STEP [Suspect]
     Active Substance: LEVONORGESTREL
     Dosage: 1 DOSE X 1
     Route: 048
     Dates: start: 20180407, end: 20180407
  2. DOXYCYCLINE. [Concomitant]
     Active Substance: DOXYCYCLINE
     Dosage: 100 MG/ QD
     Route: 048
     Dates: start: 20180301

REACTIONS (3)
  - Vaginal haemorrhage [Not Recovered/Not Resolved]
  - Intentional product misuse [Recovered/Resolved]
  - Dysmenorrhoea [Not Recovered/Not Resolved]

NARRATIVE: CASE EVENT DATE: 20180407
